FAERS Safety Report 5081123-3 (Version None)
Quarter: 2006Q3

REPORT INFORMATION
  Report Type: 
  Country: None (occurrence: None)
  Receive Date: 20060816
  Receipt Date: 20060404
  Transmission Date: 20061208
  Serious: Yes (Hospitalization)
  Sender: FDA-Public Use
  Company Number: US-KINGPHARMUSA00001-K200600421

PATIENT
  Age: 47 Year
  Sex: Female
  Weight: 55 kg

DRUGS (3)
  1. FLORINEF [Suspect]
     Dosage: 50 MCG, QD
     Route: 048
     Dates: start: 20060225
  2. HYDROCORTISONE TAB [Concomitant]
  3. ANTIDEPRESSANT [Concomitant]

REACTIONS (4)
  - ASTHENIA [None]
  - BLOOD PRESSURE DECREASED [None]
  - DEHYDRATION [None]
  - DYSPNOEA [None]
